FAERS Safety Report 24602481 (Version 2)
Quarter: 2025Q1

REPORT INFORMATION
  Report Type: Report from Study
  Country: JP (occurrence: JP)
  Receive Date: 20241111
  Receipt Date: 20250205
  Transmission Date: 20250409
  Serious: Yes (Death, Life-Threatening, Other)
  Sender: MERCK
  Company Number: JP-MSD-M2024-05630

PATIENT
  Sex: Male
  Weight: 58 kg

DRUGS (4)
  1. CILASTATIN\IMIPENEM\RELEBACTAM [Suspect]
     Active Substance: CILASTATIN\IMIPENEM\RELEBACTAM
     Indication: Pneumonia
     Dosage: 0.75 GRAM, QID
     Route: 041
     Dates: start: 20240123, end: 20240201
  2. MEROPENEM [Concomitant]
     Active Substance: MEROPENEM
     Dosage: 500 MILLIGRAM, QD
     Route: 065
     Dates: start: 20240109, end: 20240122
  3. CUBICIN [Concomitant]
     Active Substance: DAPTOMYCIN
     Route: 051
  4. MINOCYCLINE HYDROCHLORIDE [Concomitant]
     Active Substance: MINOCYCLINE HYDROCHLORIDE
     Route: 065

REACTIONS (4)
  - Sepsis [Fatal]
  - Autoimmune haemolytic anaemia [Unknown]
  - Platelet count decreased [Unknown]
  - Product use in unapproved indication [Unknown]

NARRATIVE: CASE EVENT DATE: 20240101
